FAERS Safety Report 11393916 (Version 1)
Quarter: 2015Q3

REPORT INFORMATION
  Report Type: Spontaneous
  Country: US (occurrence: None)
  Receive Date: 20150817
  Receipt Date: 20150817
  Transmission Date: 20151125
  Serious: No
  Sender: FDA-Public Use
  Company Number: None

PATIENT
  Age: 29 Year
  Sex: Male

DRUGS (1)
  1. ERTAPENEM [Suspect]
     Active Substance: ERTAPENEM
     Indication: LUNG ABSCESS
     Route: 042
     Dates: start: 20150808, end: 20150812

REACTIONS (1)
  - Seizure [None]

NARRATIVE: CASE EVENT DATE: 20150811
